FAERS Safety Report 8776985 (Version 2)
Quarter: 2012Q4

REPORT INFORMATION
  Report Type: 
  Country: KE (occurrence: KE)
  Receive Date: 20120911
  Receipt Date: 20121008
  Transmission Date: 20130627
  Serious: Yes (Other)
  Sender: FDA-Public Use
  Company Number: KE-GLAXOSMITHKLINE-B0828495A

PATIENT
  Age: 6 Year
  Sex: Female
  Weight: 18 kg

DRUGS (1)
  1. ZINNAT [Suspect]
     Indication: ACUTE TONSILLITIS
     Dosage: 250MG Twice per day
     Route: 065
     Dates: start: 20120822, end: 20120827

REACTIONS (3)
  - Drug resistance [Recovered/Resolved]
  - Condition aggravated [Recovered/Resolved]
  - White blood cell count increased [Unknown]
